FAERS Safety Report 8843748 (Version 1)
Quarter: 2012Q4

REPORT INFORMATION
  Report Type: 
  Country: CH (occurrence: CH)
  Receive Date: 20121017
  Receipt Date: 20121017
  Transmission Date: 20130627
  Serious: Yes (Disabling)
  Sender: FDA-Public Use
  Company Number: CH-009507513-1210CHL005488

PATIENT
  Age: 59 Year
  Sex: Male

DRUGS (2)
  1. TEMODAL [Suspect]
     Indication: BRAIN NEOPLASM MALIGNANT
     Dosage: UNK
     Route: 048
     Dates: start: 20120629, end: 20120702
  2. TEMODAL [Suspect]
     Dosage: UNK
     Route: 048
     Dates: start: 20100419, end: 201112

REACTIONS (4)
  - Hypoacusis [Unknown]
  - Tinnitus [Unknown]
  - Vertigo [Unknown]
  - Nausea [Unknown]
